FAERS Safety Report 7083669-5 (Version None)
Quarter: 2010Q4

REPORT INFORMATION
  Report Type: 
  Country: None (occurrence: None)
  Receive Date: 20101104
  Receipt Date: 20101022
  Transmission Date: 20110411
  Serious: Yes (Hospitalization, Other)
  Sender: FDA-Public Use
  Company Number: US-ELI_LILLY_AND_COMPANY-US201010006514

PATIENT
  Sex: Male

DRUGS (2)
  1. CYMBALTA [Suspect]
  2. WELLBUTRIN [Concomitant]

REACTIONS (4)
  - ANXIETY [None]
  - CONVULSION [None]
  - DEPRESSION [None]
  - HOSPITALISATION [None]
